FAERS Safety Report 10381695 (Version 1)
Quarter: 2014Q1

REPORT INFORMATION
  Report Type: Spontaneous
  Country: US (occurrence: None)
  Receive Date: 20140306
  Receipt Date: 20140306
  Transmission Date: 20141002
  Serious: Yes (Hospitalization)
  Sender: FDA-Public Use
  Company Number: 163-21880-13090276

PATIENT
  Age: 71 Year
  Sex: Male

DRUGS (9)
  1. REVLIMID [Suspect]
     Indication: PLASMA CELL MYELOMA
     Route: 048
     Dates: start: 20130617
  2. ACYCLOVIR (ACICLOVIR) [Concomitant]
  3. BUMETANIDE (BUMETANIDE) [Concomitant]
  4. COREG (CARVEDILOL) [Concomitant]
  5. DEXAMETHASONE (DEXAMETHASONE) [Concomitant]
  6. GRANISETRON HCL (GRANISETRON HYDROCHLORIDE) [Concomitant]
  7. HALDOL (HALOPERIDOL) [Concomitant]
  8. HUMALOG (INSULIN LISPRO) [Concomitant]
  9. LANTUS (INSULIN GLARGINE) [Concomitant]

REACTIONS (1)
  - Clostridium difficile infection [None]
